FAERS Safety Report 5170752-4 (Version None)
Quarter: 2006Q4

REPORT INFORMATION
  Report Type: 
  Country: None (occurrence: None)
  Receive Date: 20060919
  Receipt Date: 20060621
  Transmission Date: 20070319
  Serious: No
  Sender: FDA-Public Use
  Company Number: BDI-008360

PATIENT
  Age: 80 Year
  Sex: Male
  Weight: 90.91 kg

DRUGS (3)
  1. MULTIHANCE [Suspect]
     Indication: NEOPLASM
     Dosage: 15 ML ONCE IV
     Route: 042
     Dates: start: 20060620, end: 20060620
  2. MULTIHANCE [Suspect]
     Indication: NUCLEAR MAGNETIC RESONANCE IMAGING BRAIN
     Dosage: 15 ML ONCE IV
     Route: 042
     Dates: start: 20060620, end: 20060620
  3. ASPIRIN [Concomitant]

REACTIONS (1)
  - HYPERSENSITIVITY [None]
